FAERS Safety Report 16402041 (Version 8)
Quarter: 2019Q3

REPORT INFORMATION
  Report Type: Spontaneous
  Country: IT (occurrence: IT)
  Receive Date: 20190607
  Receipt Date: 20190705
  Transmission Date: 20191004
  Serious: Yes (Hospitalization, Other)
  Sender: FDA-Public Use
  Company Number: PHHY2019IT124233

PATIENT
  Age: 46 Year
  Sex: Female

DRUGS (4)
  1. PREDNISONE. [Suspect]
     Active Substance: PREDNISONE
     Indication: LIVER TRANSPLANT
     Dosage: 25 MG, QD
     Route: 065
  2. CICLOSPORIN [Suspect]
     Active Substance: CYCLOSPORINE
     Indication: IMMUNOSUPPRESSANT DRUG THERAPY
  3. CICLOSPORIN [Suspect]
     Active Substance: CYCLOSPORINE
     Indication: LIVER TRANSPLANT
     Dosage: 50 MG, BID
     Route: 065
  4. PREDNISONE. [Suspect]
     Active Substance: PREDNISONE
     Indication: IMMUNOSUPPRESSANT DRUG THERAPY

REACTIONS (11)
  - Pathogen resistance [Recovered/Resolved]
  - Product use in unapproved indication [Unknown]
  - Cutaneous malacoplakia [Recovered/Resolved]
  - Skin lesion [Recovered/Resolved]
  - Escherichia bacteraemia [Recovered/Resolved]
  - Cholangitis [Recovered/Resolved]
  - Septic vasculitis [Recovered/Resolved]
  - Escherichia infection [Recovered/Resolved]
  - Thrombosis [Recovered/Resolved]
  - Skin plaque [Recovered/Resolved]
  - Pyrexia [Recovered/Resolved]
